FAERS Safety Report 4850892-7 (Version None)
Quarter: 2005Q4

REPORT INFORMATION
  Report Type: 
  Country: None (occurrence: None)
  Receive Date: 20051212
  Receipt Date: 20041203
  Transmission Date: 20060501
  Serious: Yes (Other)
  Sender: FDA-Public Use
  Company Number: GB-GLAXOSMITHKLINE-B0361380A

PATIENT
  Sex: Female

DRUGS (4)
  1. PAROXETINE HYDROCHLORIDE [Suspect]
     Route: 065
     Dates: start: 19970902, end: 20010101
  2. IBUPROFEN [Suspect]
     Route: 048
  3. SERTRALINE HCL [Concomitant]
     Route: 065
     Dates: start: 20010501
  4. SULPIRIDE [Concomitant]
     Route: 065
     Dates: start: 20010501

REACTIONS (7)
  - DRUG WITHDRAWAL SYNDROME [None]
  - DRY MOUTH [None]
  - FEELING ABNORMAL [None]
  - HYPERHIDROSIS [None]
  - OVERDOSE [None]
  - PRURITUS [None]
  - SUICIDAL IDEATION [None]
